FAERS Safety Report 20824896 (Version 1)
Quarter: 2022Q2

REPORT INFORMATION
  Report Type: Spontaneous
  Country: HR (occurrence: HR)
  Receive Date: 20220513
  Receipt Date: 20220513
  Transmission Date: 20220721
  Serious: Yes (Hospitalization)
  Sender: FDA-Public Use
  Company Number: HR-TEVA-2022-HR-2036313

PATIENT
  Age: 0 Year
  Sex: Female
  Weight: 2 kg

DRUGS (7)
  1. ARIPIPRAZOLE [Suspect]
     Active Substance: ARIPIPRAZOLE
     Dosage: 15 MILLIGRAM DAILY;
     Route: 064
  2. ARIPIPRAZOLE [Suspect]
     Active Substance: ARIPIPRAZOLE
     Route: 064
     Dates: start: 20220121
  3. ARIPIPRAZOLE [Suspect]
     Active Substance: ARIPIPRAZOLE
     Route: 064
     Dates: start: 20220324
  4. EUTHYROX [Suspect]
     Active Substance: LEVOTHYROXINE SODIUM
     Dosage: 150 MICROGRAM DAILY; , IN THE MORNING BEFORE MEAL
     Route: 064
  5. AMPICILLIN [Suspect]
     Active Substance: AMPICILLIN
     Dosage: , 2 DAYS
     Route: 064
  6. AMOXICILLIN [Suspect]
     Active Substance: AMOXICILLIN
     Route: 064
  7. AZITHROMYCIN [Suspect]
     Active Substance: AZITHROMYCIN
     Dosage: 1 G AT ONCE
     Route: 064

REACTIONS (4)
  - Incubator therapy [Unknown]
  - Blood bilirubin increased [Unknown]
  - Premature baby [Unknown]
  - Foetal exposure during pregnancy [Unknown]

NARRATIVE: CASE EVENT DATE: 20210723
